FAERS Safety Report 9214705 (Version 2)
Quarter: 2013Q2

REPORT INFORMATION
  Report Type: Spontaneous
  Country: CA (occurrence: CA)
  Receive Date: 20130405
  Receipt Date: 20130503
  Transmission Date: 20140414
  Serious: Yes (Death, Hospitalization, Other)
  Sender: FDA-Public Use
  Company Number: CA-ELI_LILLY_AND_COMPANY-CA201303009875

PATIENT
  Age: 79 Year
  Sex: Female

DRUGS (8)
  1. FORTEO [Suspect]
     Indication: OSTEOPOROSIS
     Dosage: 20MCG, ONCE DAILY
     Route: 058
     Dates: start: 20120504
  2. LOSEC [Concomitant]
  3. SYNTHROID [Concomitant]
  4. VITAMIN D [Concomitant]
  5. CALCIUM [Concomitant]
  6. VITAMIN B12 [Concomitant]
  7. ATIVAN [Concomitant]
  8. BABY ASPIRIN [Concomitant]

REACTIONS (8)
  - Death [Fatal]
  - Fall [Not Recovered/Not Resolved]
  - Wrist fracture [Not Recovered/Not Resolved]
  - Abasia [Not Recovered/Not Resolved]
  - Condition aggravated [Unknown]
  - Anaesthetic complication [Unknown]
  - Disorientation [Unknown]
  - Confusional state [Unknown]
